FAERS Safety Report 5399894-5 (Version None)
Quarter: 2007Q3

REPORT INFORMATION
  Report Type: 
  Country: None (occurrence: None)
  Receive Date: 20070730
  Receipt Date: 20070723
  Transmission Date: 20080115
  Serious: Yes (Other)
  Sender: FDA-Public Use
  Company Number: PHEH2007US10216

PATIENT
  Age: 54 Year
  Sex: Female

DRUGS (1)
  1. ZELNORM [Suspect]
     Indication: CONSTIPATION
     Dosage: UNK, BID
     Route: 048
     Dates: start: 20030101, end: 20070501

REACTIONS (3)
  - CATHETERISATION VENOUS [None]
  - CEREBROVASCULAR ACCIDENT [None]
  - POOR VENOUS ACCESS [None]
